FAERS Safety Report 14964788 (Version 2)
Quarter: 2018Q3

REPORT INFORMATION
  Report Type: Spontaneous
  Country: JP (occurrence: JP)
  Receive Date: 20180601
  Receipt Date: 20180702
  Transmission Date: 20181010
  Serious: Yes (Other)
  Sender: FDA-Public Use
  Company Number: JP-JNJFOC-20180541466

PATIENT
  Age: 77 Year
  Sex: Female
  Weight: 49 kg

DRUGS (9)
  1. PARACETAMOL [Concomitant]
     Active Substance: ACETAMINOPHEN
     Indication: ANALGESIC THERAPY
     Route: 048
     Dates: start: 20180202
  2. HERBAL EXTRACT NOS [Concomitant]
     Active Substance: HERBALS
     Indication: ANALGESIC THERAPY
     Route: 048
     Dates: start: 20180202
  3. IGURATIMOD [Concomitant]
     Active Substance: IGURATIMOD
     Route: 048
  4. XARELTO [Suspect]
     Active Substance: RIVAROXABAN
     Indication: VENOUS THROMBOSIS LIMB
     Route: 048
     Dates: start: 20180117, end: 20180215
  5. CRESTOR [Concomitant]
     Active Substance: ROSUVASTATIN CALCIUM
     Indication: HYPERLIPIDAEMIA
     Route: 048
  6. NESINA [Concomitant]
     Active Substance: ALOGLIPTIN BENZOATE
     Indication: BLOOD GLUCOSE DECREASED
     Route: 048
  7. AMLODIPINE [Concomitant]
     Active Substance: AMLODIPINE BESYLATE
     Indication: HYPERTENSION
     Route: 048
  8. MAINTATE [Concomitant]
     Active Substance: BISOPROLOL FUMARATE
     Route: 048
  9. LASIX [Concomitant]
     Active Substance: FUROSEMIDE
     Indication: POLYURIA
     Route: 048

REACTIONS (3)
  - Occult blood positive [Unknown]
  - Renal impairment [Unknown]
  - Nephrogenic anaemia [Not Recovered/Not Resolved]

NARRATIVE: CASE EVENT DATE: 201803
